FAERS Safety Report 19714967 (Version 1)
Quarter: 2021Q3

REPORT INFORMATION
  Report Type: Spontaneous
  Country: US (occurrence: US)
  Receive Date: 20210818
  Receipt Date: 20210818
  Transmission Date: 20211014
  Serious: No
  Sender: FDA-Public Use
  Company Number: US-BIOVITRUM-2021US7541

PATIENT
  Sex: Male
  Weight: 11 kg

DRUGS (4)
  1. TYLENOL [Concomitant]
     Active Substance: ACETAMINOPHEN
  2. DESITIN 13 [Concomitant]
  3. MULTIVITAMIN TAB CHEW [Concomitant]
  4. SYNAGIS [Suspect]
     Active Substance: PALIVIZUMAB
     Indication: ANTIVIRAL PROPHYLAXIS
     Dosage: SYNAGIS 50MG/0.5ML VL LIQUID
     Route: 030

REACTIONS (1)
  - Vomiting [Unknown]
